FAERS Safety Report 20461126 (Version 8)
Quarter: 2023Q4

REPORT INFORMATION
  Report Type: Report from Study
  Country: US (occurrence: US)
  Receive Date: 20220211
  Receipt Date: 20231102
  Transmission Date: 20240109
  Serious: Yes (Hospitalization)
  Sender: FDA-Public Use
  Company Number: US-HRARD-2021001098

PATIENT
  Age: 62 Year
  Sex: Male

DRUGS (14)
  1. LYSODREN [Suspect]
     Active Substance: MITOTANE
     Indication: Adrenocortical carcinoma
     Route: 048
     Dates: start: 20210427
  2. LYSODREN [Suspect]
     Active Substance: MITOTANE
     Indication: Adrenocortical carcinoma
     Dosage: 4 TABLETS BID
     Route: 048
     Dates: start: 2021
  3. LYSODREN [Suspect]
     Active Substance: MITOTANE
     Indication: Adrenocortical carcinoma
     Dosage: 5 TABLETS BID
     Route: 048
     Dates: start: 2021
  4. LYSODREN [Suspect]
     Active Substance: MITOTANE
     Indication: Adrenocortical carcinoma
     Dosage: 05 TABLETS TWICE DAILY
     Route: 048
  5. LYSODREN [Suspect]
     Active Substance: MITOTANE
     Indication: Adrenocortical carcinoma
     Dosage: 05 TABLETS IN THE MORNING AND 04 TABLETS IN THE EVENING
     Route: 048
  6. GAVILYTE - C [Concomitant]
     Active Substance: POLYETHYLENE GLYCOL 3350\POTASSIUM CHLORIDE\SODIUM BICARBONATE\SODIUM CHLORIDE\SODIUM SULFATE
     Indication: Product used for unknown indication
  7. PREDNISONE [Concomitant]
     Active Substance: PREDNISONE
     Indication: Product used for unknown indication
     Dosage: 20 MG
  8. PREDNISONE [Concomitant]
     Active Substance: PREDNISONE
     Indication: Product used for unknown indication
     Dosage: 5 MG
  9. Levothyroxin Tab 100 mcg [Concomitant]
     Indication: Product used for unknown indication
  10. PERCOCET TAB 5-325MG [Concomitant]
     Indication: Product used for unknown indication
  11. FLUDROCORT TAB 0.1MG [Concomitant]
     Indication: Product used for unknown indication
  12. Omeprazole cap 40 mg [Concomitant]
     Indication: Product used for unknown indication
  13. Multivitamin tab [Concomitant]
     Indication: Product used for unknown indication
  14. LIALDA [Concomitant]
     Active Substance: MESALAMINE
     Indication: Product used for unknown indication

REACTIONS (3)
  - Urinary tract infection [Recovered/Resolved]
  - Colitis [Not Recovered/Not Resolved]
  - Diarrhoea [Not Recovered/Not Resolved]

NARRATIVE: CASE EVENT DATE: 20210901
